FAERS Safety Report 6494044-6 (Version None)
Quarter: 2009Q4

REPORT INFORMATION
  Report Type: 
  Country: None (occurrence: None)
  Receive Date: 20091214
  Receipt Date: 20081215
  Transmission Date: 20100525
  Serious: No
  Sender: FDA-Public Use
  Company Number: US-BRISTOL-MYERS SQUIBB COMPANY-14443493

PATIENT
  Age: 34 Year
  Sex: Female
  Weight: 99 kg

DRUGS (5)
  1. ABILIFY [Suspect]
     Indication: IRRITABILITY
     Dosage: 2MG FOR FIRST DAY AND 2MG TWICE DAILY THEREAFTER
     Dates: start: 20081202, end: 20081201
  2. ABILIFY [Suspect]
     Indication: ANGER
     Dosage: 2MG FOR FIRST DAY AND 2MG TWICE DAILY THEREAFTER
     Dates: start: 20081202, end: 20081201
  3. ABILIFY [Suspect]
     Indication: INSOMNIA
     Dosage: 2MG FOR FIRST DAY AND 2MG TWICE DAILY THEREAFTER
     Dates: start: 20081202, end: 20081201
  4. ABILIFY [Suspect]
     Indication: PARANOIA
     Dosage: 2MG FOR FIRST DAY AND 2MG TWICE DAILY THEREAFTER
     Dates: start: 20081202, end: 20081201
  5. BUSPAR [Concomitant]

REACTIONS (1)
  - SWOLLEN TONGUE [None]
